FAERS Safety Report 11696169 (Version 3)
Quarter: 2015Q4

REPORT INFORMATION
  Report Type: Report from Study
  Country: AR (occurrence: AR)
  Receive Date: 20151104
  Receipt Date: 20151207
  Transmission Date: 20160304
  Serious: No
  Sender: FDA-Public Use
  Company Number: AR-SA-2015SA169918

PATIENT
  Age: 55 Year
  Sex: Male

DRUGS (14)
  1. OMEPRAZOLE. [Concomitant]
     Active Substance: OMEPRAZOLE
     Dosage: AT09:00 HRS IN THE MORNING
  2. BISOPROLOL [Concomitant]
     Active Substance: BISOPROLOL
     Dosage: CORBIS 5 (BISOPROLOL) AT 10:40 HRS IN THE MORNING
  3. CLOPIDOGREL [Concomitant]
     Active Substance: CLOPIDOGREL BISULFATE
  4. URSODEOXYCHOLIC ACID [Concomitant]
     Active Substance: URSODIOL
  5. LEVOTHYROXINE SODIUM. [Concomitant]
     Active Substance: LEVOTHYROXINE SODIUM
     Dosage: ON EMPTY STOMACH
  6. ENALAPRIL [Concomitant]
     Active Substance: ENALAPRIL
     Dosage: GLISTEN 2,5 (ENALAPRIL) AT 10:00HRS IN THE MORNING
  7. ASPIRINETAS [Concomitant]
     Active Substance: ASPIRIN
  8. MEDOCOR [Concomitant]
  9. OMACOR [Concomitant]
     Active Substance: OMEGA-3-ACID ETHYL ESTERS
  10. CILOSTAZOL. [Concomitant]
     Active Substance: CILOSTAZOL
     Dosage: CILOSTAZOL 50 (12,00HS)
  11. ROSUVASTATIN [Concomitant]
     Active Substance: ROSUVASTATIN
  12. MIPOMERSEN SODIUM [Suspect]
     Active Substance: MIPOMERSEN SODIUM
     Indication: TYPE IIA HYPERLIPIDAEMIA
     Dosage: DOSE:200 MILLIGRAM(S)/MILLILITRE
     Route: 058
     Dates: start: 20151022
  13. ZETIA [Concomitant]
     Active Substance: EZETIMIBE
  14. ALPLAX [Concomitant]

REACTIONS (11)
  - Influenza like illness [Unknown]
  - Asthenia [Unknown]
  - Hepatomegaly [Unknown]
  - Injection site haematoma [Recovering/Resolving]
  - Hot flush [Unknown]
  - Flatulence [Unknown]
  - Lethargy [Unknown]
  - Hepatic steatosis [Unknown]
  - Liver disorder [Unknown]
  - Injection site inflammation [Recovering/Resolving]
  - Food intolerance [Unknown]

NARRATIVE: CASE EVENT DATE: 201510
